FAERS Safety Report 8860987 (Version 5)
Quarter: 2013Q1

REPORT INFORMATION
  Report Type: Spontaneous
  Country: US (occurrence: US)
  Receive Date: 20121025
  Receipt Date: 20130308
  Transmission Date: 20140127
  Serious: Yes (Hospitalization, Disabling, Other)
  Sender: FDA-Public Use
  Company Number: US-009507513-1210USA005988

PATIENT
  Sex: Female
  Weight: 47.62 kg

DRUGS (4)
  1. FOSAMAX [Suspect]
     Indication: OSTEOPOROSIS
     Dosage: 70 MG, QW
     Route: 048
     Dates: start: 20020604
  2. CATAPRES [Concomitant]
     Indication: HYPERTENSION
     Dosage: UNK
     Dates: start: 2000, end: 2010
  3. ZESTRIL [Concomitant]
  4. ASPIRIN [Concomitant]

REACTIONS (15)
  - Femoral neck fracture [Not Recovered/Not Resolved]
  - Fall [Not Recovered/Not Resolved]
  - Open reduction of fracture [Unknown]
  - Femur fracture [Not Recovered/Not Resolved]
  - Open reduction of fracture [Unknown]
  - Low turnover osteopathy [Not Recovered/Not Resolved]
  - Pulmonary mass [Unknown]
  - Thoracotomy [Unknown]
  - Urinary retention [Unknown]
  - Fall [Not Recovered/Not Resolved]
  - Anaemia [Unknown]
  - Cystitis noninfective [Not Recovered/Not Resolved]
  - Cataract operation [Unknown]
  - Osteoarthritis [Unknown]
  - Tonsillectomy [Unknown]
